FAERS Safety Report 4545275-3 (Version None)
Quarter: 2005Q1

REPORT INFORMATION
  Report Type: 
  Country: None (occurrence: None)
  Receive Date: 20050105
  Receipt Date: 20041221
  Transmission Date: 20050727
  Serious: Yes (Hospitalization)
  Sender: FDA-Public Use
  Company Number: US-JNJFOC-20041206237

PATIENT
  Age: 46 Year
  Sex: Female

DRUGS (7)
  1. TOPAMAX [Suspect]
     Dosage: 200 MG 2-3 TIMES/DAY
     Route: 049
  2. CARISOPRODOL [Concomitant]
  3. NORETHINDRONE ACETATE [Concomitant]
  4. HYDROCODONE [Concomitant]
  5. SPIRONOLACTONE [Concomitant]
  6. PREMARIN [Concomitant]
  7. VITAMIN E [Concomitant]

REACTIONS (7)
  - ALOPECIA [None]
  - ASTHENIA [None]
  - DIZZINESS [None]
  - ENDOMETRIOSIS [None]
  - HYPOTRICHOSIS [None]
  - SYNCOPE [None]
  - TREMOR [None]
